FAERS Safety Report 4307685-9 (Version None)
Quarter: 2004Q1

REPORT INFORMATION
  Report Type: 
  Country: None (occurrence: None)
  Receive Date: 20040227
  Receipt Date: 20040227
  Transmission Date: 20041129
  Serious: Yes (Hospitalization)
  Sender: FDA-Public Use
  Company Number: None

PATIENT
  Age: 55 Year
  Sex: Male
  Weight: 88.9 kg

DRUGS (3)
  1. DILTIAZEM [Suspect]
  2. AMIODARONE HCL [Concomitant]
  3. ATENOLOL [Concomitant]

REACTIONS (1)
  - ORTHOSTATIC HYPOTENSION [None]
